FAERS Safety Report 7464558-0 (Version None)
Quarter: 2011Q2

REPORT INFORMATION
  Report Type: 
  Country: None (occurrence: None)
  Receive Date: 20110428
  Receipt Date: 20110412
  Transmission Date: 20111010
  Serious: Yes (Hospitalization)
  Sender: FDA-Public Use
  Company Number: JPI-P-014595

PATIENT
  Age: 64 Year
  Sex: Female

DRUGS (1)
  1. XYREM [Suspect]
     Indication: SLEEP DISORDER
     Dosage: (2 IN 1 D), ORAL 9 GM (4.5 GM, 2 IN 1 D), ORAL
     Route: 048
     Dates: start: 20100903

REACTIONS (3)
  - BIPOLAR DISORDER [None]
  - DEPRESSION [None]
  - CONDITION AGGRAVATED [None]
